FAERS Safety Report 6989577-X (Version None)
Quarter: 2010Q3

REPORT INFORMATION
  Report Type: 
  Country: None (occurrence: None)
  Receive Date: 20100916
  Receipt Date: 20100222
  Transmission Date: 20110219
  Serious: Yes (Death, Other)
  Sender: FDA-Public Use
  Company Number: US-PFIZER INC-2008154175

PATIENT
  Sex: Female
  Weight: 136 kg

DRUGS (15)
  1. LYRICA [Suspect]
     Indication: NEURALGIA
     Dosage: 50 MG, 1X/DAY
     Route: 048
     Dates: start: 20080101
  2. LYRICA [Suspect]
     Indication: SCIATICA
  3. LYRICA [Suspect]
     Indication: SPINAL COLUMN STENOSIS
  4. GLUCOSAMINE [Suspect]
     Dosage: UNK
  5. MAGNESIUM [Suspect]
     Dosage: UNK
  6. FISH OIL [Suspect]
     Dosage: UNK
  7. PRILOSEC [Concomitant]
     Indication: GASTROOESOPHAGEAL REFLUX DISEASE
     Dosage: UNK
  8. BACLOFEN [Concomitant]
     Dosage: 10 MG, UNK
  9. PROAIR HFA [Concomitant]
     Dosage: 90 MCG /INHALATION
     Route: 055
  10. METFORMIN [Concomitant]
     Dosage: 500 MG, UNK
  11. DILTIAZEM [Concomitant]
     Dosage: 90 MG, UNK
  12. MELOXICAM [Concomitant]
     Dosage: 15 MG, UNK
  13. DARVOCET-N 100 [Concomitant]
     Dosage: 100/650 MG
  14. OXYBUTYNIN [Concomitant]
     Dosage: UNK
  15. CLARITIN [Concomitant]
     Dosage: UNK

REACTIONS (4)
  - CEREBRAL HAEMORRHAGE [None]
  - COMA [None]
  - DEATH [None]
  - DYSPNOEA [None]
